FAERS Safety Report 21508087 (Version 1)
Quarter: 2022Q4

REPORT INFORMATION
  Report Type: Spontaneous
  Country: US (occurrence: US)
  Receive Date: 20221026
  Receipt Date: 20221026
  Transmission Date: 20230113
  Serious: No
  Sender: FDA-Public Use
  Company Number: US-SA-SAC20221017000342

PATIENT

DRUGS (1)
  1. SUTIMLIMAB [Suspect]
     Active Substance: SUTIMLIMAB
     Dosage: UNK
     Route: 065

REACTIONS (4)
  - Red blood cell agglutination [Unknown]
  - Haemoglobin abnormal [Unknown]
  - Chest pain [Unknown]
  - Dyspnoea [Unknown]
